FAERS Safety Report 7426834-7 (Version None)
Quarter: 2011Q2

REPORT INFORMATION
  Report Type: 
  Country: None (occurrence: None)
  Receive Date: 20110420
  Receipt Date: 20110328
  Transmission Date: 20111010
  Serious: No
  Sender: FDA-Public Use
  Company Number: US-B.I. PHARMACEUTICALS,INC./RIDGEFIELD-2011-BP-03406BP

PATIENT
  Sex: Female

DRUGS (4)
  1. LOTENSIN [Concomitant]
  2. PROGESTERONE [Concomitant]
  3. ESTRADIOL [Concomitant]
  4. ZANTAC [Suspect]
     Indication: DYSPEPSIA
     Dosage: 300 MG

REACTIONS (1)
  - DRUG INEFFECTIVE [None]
